FAERS Safety Report 13393477 (Version 1)
Quarter: 2017Q1

REPORT INFORMATION
  Report Type: Spontaneous
  Country: JP (occurrence: JP)
  Receive Date: 20170331
  Receipt Date: 20170331
  Transmission Date: 20170429
  Serious: Yes (Other)
  Sender: FDA-Public Use
  Company Number: JP-BAUSCH-BL-2017-007501

PATIENT
  Age: 12 Year
  Sex: Male
  Weight: 37.95 kg

DRUGS (10)
  1. ALBUMIN [Suspect]
     Active Substance: ALBUMIN HUMAN
     Indication: HYPOPROTEINAEMIA
     Dosage: 80 G (20 G/DAY X 4 DAYS)
     Route: 042
  2. METHYLPREDNISOLONE. [Suspect]
     Active Substance: METHYLPREDNISOLONE
     Indication: PRODUCT USED FOR UNKNOWN INDICATION
     Dosage: 500 MG/DAY FOR THREE DAYS PER WEEK
     Route: 065
  3. PREDNISOLONE. [Suspect]
     Active Substance: PREDNISOLONE
     Dosage: ON ALTERNATE DAYS
     Route: 048
  4. ALBUMIN [Suspect]
     Active Substance: ALBUMIN HUMAN
     Dosage: 10 - 20 G/DAY ONCE TO TWICE A WEEK
     Route: 042
  5. PREDNISOLONE. [Suspect]
     Active Substance: PREDNISOLONE
     Indication: NEPHROTIC SYNDROME
     Dosage: IN THREE DIVIDED DOSES
     Route: 048
  6. PREDNISOLONE. [Suspect]
     Active Substance: PREDNISOLONE
     Dosage: REINCREASED
     Route: 048
  7. PREDNISOLONE. [Suspect]
     Active Substance: PREDNISOLONE
     Dosage: ON ALTERNATIVE DAYS
     Route: 048
  8. PREDNISOLONE. [Suspect]
     Active Substance: PREDNISOLONE
     Route: 048
  9. METHYLPREDNISOLONE. [Suspect]
     Active Substance: METHYLPREDNISOLONE
     Dosage: 1000 MG/DAY FOR THREE DAYS PER WEEK
     Route: 065
  10. PREDNISOLONE. [Suspect]
     Active Substance: PREDNISOLONE
     Dosage: AGAIN DOSE INCREASED
     Route: 048

REACTIONS (6)
  - Osteoporosis [Unknown]
  - Nephrotic syndrome [Unknown]
  - Drug resistance [Unknown]
  - Spinal compression fracture [Unknown]
  - Back pain [Recovered/Resolved]
  - Disease recurrence [Unknown]
